FAERS Safety Report 17148341 (Version 2)
Quarter: 2019Q4

REPORT INFORMATION
  Report Type: Report from Study
  Country: US (occurrence: US)
  Receive Date: 20191212
  Receipt Date: 20191216
  Transmission Date: 20200122
  Serious: No
  Sender: FDA-Public Use
  Company Number: NVSC2019US019664

PATIENT
  Sex: Female

DRUGS (1)
  1. GILENYA [Suspect]
     Active Substance: FINGOLIMOD HYDROCHLORIDE
     Indication: MULTIPLE SCLEROSIS
     Dosage: 0.5 MG, QD
     Route: 048

REACTIONS (13)
  - Hormone level abnormal [Unknown]
  - Blood magnesium decreased [Unknown]
  - Lethargy [Unknown]
  - Muscle spasms [Unknown]
  - Blood iron decreased [Unknown]
  - Menorrhagia [Unknown]
  - Herpes zoster [Unknown]
  - Anaemia [Not Recovered/Not Resolved]
  - Infectious mononucleosis [Unknown]
  - Fatigue [Unknown]
  - Oral infection [Unknown]
  - Headache [Unknown]
  - Migraine [Not Recovered/Not Resolved]
